FAERS Safety Report 4982618-0 (Version None)
Quarter: 2006Q2

REPORT INFORMATION
  Report Type: 
  Country: None (occurrence: None)
  Receive Date: 20060419
  Receipt Date: 20060407
  Transmission Date: 20061013
  Serious: Yes (Other)
  Sender: FDA-Public Use
  Company Number: 2006048509

PATIENT
  Age: 39 Year
  Sex: Female
  Weight: 61.2356 kg

DRUGS (3)
  1. HYDROCORTISONE [Suspect]
     Indication: TOOTHACHE
     Dosage: ON 2 OCCASIONS, ORAL
     Route: 048
     Dates: start: 20060210, end: 20060323
  2. PSEUDOEPHEDRINE HYDROCHLORIDE [Concomitant]
  3. ALLEREST (CHLORPHENAMINE MALEATE, METHAPYRILENE FUMARATE, PHENYLPROPAN [Concomitant]

REACTIONS (8)
  - CELLULITIS [None]
  - DENTAL CARIES [None]
  - FACE OEDEMA [None]
  - INTENTIONAL DRUG MISUSE [None]
  - RASH [None]
  - SELF-MEDICATION [None]
  - SINUS DISORDER [None]
  - TOOTH ABSCESS [None]
